FAERS Safety Report 5181102-1 (Version None)
Quarter: 2006Q4

REPORT INFORMATION
  Report Type: 
  Country: None (occurrence: None)
  Receive Date: 20061220
  Receipt Date: 20061207
  Transmission Date: 20070319
  Serious: Yes (Congenital Anomaly)
  Sender: FDA-Public Use
  Company Number: GB-ROCHE-474743

PATIENT
  Age: 31 Year
  Sex: Female

DRUGS (5)
  1. FUZEON [Suspect]
     Route: 058
  2. REYATAZ [Suspect]
     Route: 065
  3. DIDANOSINE [Suspect]
     Route: 065
     Dates: end: 20040109
  4. LAMIVUDINE [Suspect]
     Route: 065
  5. NORVIR [Suspect]
     Route: 065

REACTIONS (6)
  - ABORTION SPONTANEOUS [None]
  - CONGENITAL ANOMALY [None]
  - DRUG EXPOSURE DURING PREGNANCY [None]
  - PLACENTAL INFARCTION [None]
  - PREGNANCY [None]
  - UMBILICAL CORD ABNORMALITY [None]
